FAERS Safety Report 10241081 (Version 1)
Quarter: 2014Q2

REPORT INFORMATION
  Report Type: Spontaneous
  Country: US (occurrence: US)
  Receive Date: 20140617
  Receipt Date: 20140617
  Transmission Date: 20141212
  Serious: Yes (Other)
  Sender: FDA-Public Use
  Company Number: US-ELI_LILLY_AND_COMPANY-US201406002880

PATIENT
  Age: 62 Year
  Sex: Male

DRUGS (2)
  1. CIALIS [Suspect]
     Indication: ERECTILE DYSFUNCTION
     Dosage: 5 MG, QD
     Route: 065
  2. CIALIS [Suspect]
     Indication: BENIGN PROSTATIC HYPERPLASIA

REACTIONS (1)
  - Blindness unilateral [Unknown]
